FAERS Safety Report 13509654 (Version 6)
Quarter: 2019Q2

REPORT INFORMATION
  Report Type: Spontaneous
  Country: US (occurrence: US)
  Receive Date: 20170503
  Receipt Date: 20190529
  Transmission Date: 20190711
  Serious: No
  Sender: FDA-Public Use
  Company Number: US-SA-2017SA028900

PATIENT
  Age: 74 Year
  Sex: Male

DRUGS (1)
  1. PRALUENT [Suspect]
     Active Substance: ALIROCUMAB
     Indication: PRODUCT USED FOR UNKNOWN INDICATION
     Dosage: 150 MG,QOW
     Route: 058
     Dates: start: 20170102

REACTIONS (8)
  - Dyspepsia [Unknown]
  - Diarrhoea [Unknown]
  - Muscle spasms [Unknown]
  - Skin exfoliation [Unknown]
  - Oropharyngeal pain [Unknown]
  - Erythema [Unknown]
  - Musculoskeletal stiffness [Unknown]
  - Blister [Unknown]

NARRATIVE: CASE EVENT DATE: 2017
